FAERS Safety Report 7039029-6 (Version None)
Quarter: 2010Q4

REPORT INFORMATION
  Report Type: 
  Country: None (occurrence: None)
  Receive Date: 20101012
  Receipt Date: 20100929
  Transmission Date: 20110411
  Serious: Yes (Disabling, Other)
  Sender: FDA-Public Use
  Company Number: US-ELI_LILLY_AND_COMPANY-US201004006353

PATIENT
  Sex: Female

DRUGS (3)
  1. CIALIS [Suspect]
     Indication: INTERMITTENT CLAUDICATION
     Dosage: 2.5 MG, UNKNOWN
     Dates: start: 20100217, end: 20100226
  2. COUMADIN [Concomitant]
  3. NEURONTIN [Concomitant]

REACTIONS (4)
  - BLINDNESS [None]
  - OFF LABEL USE [None]
  - VISION BLURRED [None]
  - VISUAL ACUITY REDUCED [None]
